FAERS Safety Report 22833117 (Version 3)
Quarter: 2023Q4

REPORT INFORMATION
  Report Type: Report from Study
  Country: FI (occurrence: FI)
  Receive Date: 20230817
  Receipt Date: 20231113
  Transmission Date: 20240110
  Serious: Yes (Other)
  Sender: FDA-Public Use
  Company Number: FI-MYLANLABS-2023M1085592

PATIENT
  Sex: Male

DRUGS (4)
  1. CLOZAPINE [Suspect]
     Active Substance: CLOZAPINE
     Indication: Psychotic symptom
     Dosage: 400 MILLIGRAM, QD (100 MG PER MORNING AND 300 MG PER EVENING)
     Route: 065
     Dates: start: 20190728, end: 202302
  2. CLOZAPINE [Suspect]
     Active Substance: CLOZAPINE
     Dosage: UNK (DOSE REDUCED)
     Route: 065
     Dates: start: 202302, end: 20230308
  3. CLOZAPINE [Suspect]
     Active Substance: CLOZAPINE
     Dosage: UNK
     Route: 065
     Dates: start: 20230812
  4. PROPRANOLOL HYDROCHLORIDE [Concomitant]
     Active Substance: PROPRANOLOL HYDROCHLORIDE
     Dosage: 40 MILLIGRAM (1 TABLET ORALLY 1 TO 2 TIMES DAILY AS REQUIRED)
     Route: 048
     Dates: end: 20220906

REACTIONS (7)
  - Neutropenia [Recovered/Resolved]
  - Condition aggravated [Recovering/Resolving]
  - Aggression [Recovering/Resolving]
  - General physical health deterioration [Recovering/Resolving]
  - Paranoia [Unknown]
  - Obsessive thoughts [Recovering/Resolving]
  - Off label use [Unknown]

NARRATIVE: CASE EVENT DATE: 20190728
